FAERS Safety Report 8369237-3 (Version None)
Quarter: 2012Q1

REPORT INFORMATION
  Report Type: 
  Country: None (occurrence: None)
  Receive Date: 20120323
  Receipt Date: 20111119
  Transmission Date: 20120608
  Serious: Yes (Hospitalization)
  Sender: FDA-Public Use
  Company Number: 163-21880-11112914

PATIENT
  Age: 68 Year
  Sex: Male
  Weight: 87.9978 kg

DRUGS (16)
  1. FUROSEMIDE [Concomitant]
  2. SINGULAIR [Concomitant]
  3. LOSARTAN POTASSIUM [Concomitant]
  4. SPIRIVA [Concomitant]
  5. REVLIMID [Suspect]
     Indication: MULTIPLE MYELOMA
     Dosage: 10 MG, DAILY FOR 21 DAYS EVERY 28 DAYS, PO; 10 MG, DAILY FOR 21 DAYS EVERY 28 DAYS, PO
     Route: 048
     Dates: start: 20111102, end: 20111117
  6. REVLIMID [Suspect]
     Indication: MULTIPLE MYELOMA
     Dosage: 10 MG, DAILY FOR 21 DAYS EVERY 28 DAYS, PO; 10 MG, DAILY FOR 21 DAYS EVERY 28 DAYS, PO
     Route: 048
     Dates: start: 20110628, end: 20110101
  7. KLOR-CON [Concomitant]
  8. SERTRALINE HYDROCHLORIDE [Concomitant]
  9. DIAZEPAM [Concomitant]
  10. BENZONATATE [Concomitant]
  11. BUMETANIDE [Concomitant]
  12. HYDROCODONE BITARTRATE [Concomitant]
  13. VITAMINS D3 (COLECALCIFEROL) [Concomitant]
  14. DILTIZEM (DILTIAZEM HYDROCHLORIDE) [Concomitant]
  15. CYCLOBENZAPRINE [Concomitant]
  16. ARICEPT [Concomitant]

REACTIONS (1)
  - GASTROINTESTINAL INFECTION [None]
